FAERS Safety Report 5426203-5 (Version None)
Quarter: 2007Q3

REPORT INFORMATION
  Report Type: 
  Country: None (occurrence: None)
  Receive Date: 20070827
  Receipt Date: 20070821
  Transmission Date: 20080115
  Serious: Yes (Hospitalization)
  Sender: FDA-Public Use
  Company Number: B0483212A

PATIENT
  Age: 57 Year
  Sex: Female

DRUGS (8)
  1. PAXIL [Suspect]
     Indication: ANXIETY DISORDER
     Dosage: 20MG PER DAY
     Route: 048
     Dates: start: 20061201, end: 20070801
  2. VESICARE [Suspect]
     Indication: DRUG USE FOR UNKNOWN INDICATION
     Dosage: 5MG PER DAY
     Route: 048
     Dates: start: 20070704
  3. DEPAS [Concomitant]
     Route: 048
  4. HALCION [Concomitant]
     Route: 048
  5. TETRAMIDE [Concomitant]
     Route: 048
  6. MEILAX [Concomitant]
     Route: 048
  7. ZOLPIDEM [Concomitant]
     Route: 048
  8. POLLAKISU [Concomitant]
     Route: 048
     Dates: end: 20070703

REACTIONS (4)
  - BLOOD CREATINE PHOSPHOKINASE INCREASED [None]
  - C-REACTIVE PROTEIN INCREASED [None]
  - PYREXIA [None]
  - SEROTONIN SYNDROME [None]
